FAERS Safety Report 12274373 (Version 1)
Quarter: 2016Q2

REPORT INFORMATION
  Report Type: Spontaneous
  Country: US (occurrence: US)
  Receive Date: 20160415
  Receipt Date: 20160415
  Transmission Date: 20160815
  Serious: No
  Sender: FDA-Public Use
  Company Number: US-ALLERGAN-1511200US

PATIENT
  Sex: Male
  Weight: 90.7 kg

DRUGS (10)
  1. LUMIGAN [Suspect]
     Active Substance: BIMATOPROST
     Indication: GLAUCOMA
     Dosage: 1 GTT, QHS
     Route: 047
  2. LACTISONA [Concomitant]
     Dosage: UNK, PRN
  3. MEDCOR [Concomitant]
     Dosage: UNK UNK, BID
  4. SPIRONOLACTONE. [Concomitant]
     Active Substance: SPIRONOLACTONE
     Dosage: 1 DF, QD
  5. TYLENOL [Concomitant]
     Active Substance: ACETAMINOPHEN
     Dosage: 2 DF, QD
  6. AMIODARON [Concomitant]
     Active Substance: AMIODARONE
     Dosage: M-F, NONE S-S
  7. SINEMET [Concomitant]
     Active Substance: CARBIDOPA\LEVODOPA
     Dosage: 1 DF, UNK
  8. K TAB [Concomitant]
     Dosage: 1 DF, QD
  9. TRIAMCINOLONE [Concomitant]
     Active Substance: TRIAMCINOLONE
     Dosage: AS NEEDED
  10. COZAAR [Concomitant]
     Active Substance: LOSARTAN POTASSIUM
     Dosage: UNK, QD

REACTIONS (3)
  - Device malfunction [Recovered/Resolved]
  - Inappropriate schedule of drug administration [Unknown]
  - Blepharal pigmentation [Recovered/Resolved]

NARRATIVE: CASE EVENT DATE: 20150605
